FAERS Safety Report 8322101-8 (Version None)
Quarter: 2012Q2

REPORT INFORMATION
  Report Type: 
  Country: None (occurrence: None)
  Receive Date: 20120430
  Receipt Date: 20120417
  Transmission Date: 20120825
  Serious: Yes (Death, Hospitalization, Other)
  Sender: FDA-Public Use
  Company Number: IL-ROCHE-1055649

PATIENT
  Age: 64 Year
  Sex: Male

DRUGS (5)
  1. CHEMOTHERAPY NOS [Concomitant]
     Indication: LYMPHOMA
  2. STEROIDS - UNKNOWN TYPE [Concomitant]
     Indication: PREMEDICATION
  3. PHENERGAN [Concomitant]
     Indication: PREMEDICATION
  4. ACAMOL [Concomitant]
     Indication: PREMEDICATION
  5. MABTHERA [Suspect]
     Indication: LYMPHOMA
     Route: 042

REACTIONS (11)
  - UNEVALUABLE EVENT [None]
  - CHILLS [None]
  - CONFUSIONAL STATE [None]
  - PYREXIA [None]
  - HYPOTENSION [None]
  - PLEURAL EFFUSION [None]
  - HEPATIC ENZYME INCREASED [None]
  - CYTOKINE STORM [None]
  - BLOOD LACTATE DEHYDROGENASE INCREASED [None]
  - BACK PAIN [None]
  - HYPOXIA [None]
